FAERS Safety Report 5175897-0 (Version None)
Quarter: 2006Q4

REPORT INFORMATION
  Report Type: 
  Country: None (occurrence: None)
  Receive Date: 20061215
  Receipt Date: 20061205
  Transmission Date: 20070319
  Serious: Yes (Other)
  Sender: FDA-Public Use
  Company Number: PT-GLAXOSMITHKLINE-B0449935A

PATIENT
  Age: 2 Year
  Sex: Male

DRUGS (1)
  1. CLAVAMOX [Suspect]
     Dosage: 10ML PER DAY
     Route: 048
     Dates: start: 20061003

REACTIONS (5)
  - DERMATITIS ALLERGIC [None]
  - DRUG INEFFECTIVE [None]
  - HYPERTHERMIA [None]
  - PYREXIA [None]
  - RASH [None]
